FAERS Safety Report 18544920 (Version 1)
Quarter: 2020Q4

REPORT INFORMATION
  Report Type: Spontaneous
  Country: LB (occurrence: LB)
  Receive Date: 20201125
  Receipt Date: 20201125
  Transmission Date: 20210114
  Serious: Yes (Death)
  Sender: FDA-Public Use
  Company Number: LB-NOVOPROD-768163

PATIENT
  Sex: Male

DRUGS (1)
  1. NOVOSEVEN [Suspect]
     Active Substance: COAGULATION FACTOR VIIA RECOMBINANT HUMAN
     Indication: POST PROCEDURAL HAEMORRHAGE
     Dosage: 7 MG, QD
     Route: 065
     Dates: start: 20201113, end: 20201114

REACTIONS (2)
  - Off label use [Unknown]
  - Post procedural haemorrhage [Fatal]

NARRATIVE: CASE EVENT DATE: 20201113
